FAERS Safety Report 11328713 (Version 2)
Quarter: 2015Q3

REPORT INFORMATION
  Report Type: Report from Study
  Country: US (occurrence: US)
  Receive Date: 20150731
  Receipt Date: 20150908
  Transmission Date: 20151125
  Serious: Yes (Other)
  Sender: FDA-Public Use
  Company Number: US-ACTELION-A-NJ2015-118714

PATIENT
  Age: 65 Year
  Sex: Female

DRUGS (2)
  1. TRACLEER [Suspect]
     Active Substance: BOSENTAN
     Indication: PULMONARY ARTERIAL HYPERTENSION
     Dosage: UNK
     Route: 048
  2. COUMADIN [Concomitant]
     Active Substance: WARFARIN SODIUM

REACTIONS (9)
  - Peripheral swelling [Unknown]
  - Knee operation [Unknown]
  - Generalised oedema [Unknown]
  - Dizziness postural [Unknown]
  - Dizziness [Unknown]
  - Muscular weakness [Unknown]
  - Loss of consciousness [Unknown]
  - Constipation [Unknown]
  - Fall [Unknown]
